FAERS Safety Report 5620580-8 (Version None)
Quarter: 2008Q1

REPORT INFORMATION
  Report Type: 
  Country: None (occurrence: None)
  Receive Date: 20080208
  Receipt Date: 20080124
  Transmission Date: 20080703
  Serious: Yes (Hospitalization)
  Sender: FDA-Public Use
  Company Number: PL-BAYER-200811796GPV

PATIENT
  Age: 77 Year
  Sex: Female

DRUGS (2)
  1. ASPIRIN [Suspect]
     Indication: MUSCULOSKELETAL PAIN
     Route: 048
  2. IBUPROFEN [Suspect]
     Indication: MUSCULOSKELETAL PAIN
     Route: 048

REACTIONS (3)
  - ECZEMA [None]
  - RASH PAPULAR [None]
  - STEVENS-JOHNSON SYNDROME [None]
